FAERS Safety Report 17041977 (Version 4)
Quarter: 2020Q4

REPORT INFORMATION
  Report Type: Report from Study
  Country: HK (occurrence: HK)
  Receive Date: 20191118
  Receipt Date: 20201224
  Transmission Date: 20210113
  Serious: Yes (Death)
  Sender: FDA-Public Use
  Company Number: HK-ROCHE-2474323

PATIENT
  Age: 63 Year
  Sex: Male
  Weight: 76.4 kg

DRUGS (5)
  1. ATEZOLIZUMAB. [Suspect]
     Active Substance: ATEZOLIZUMAB
     Indication: HEPATOCELLULAR CARCINOMA
     Dosage: MOST RECENT DOSE OF 1200 MG ON 29/OCT/2019
     Route: 042
     Dates: start: 20191009
  2. ENTECAVIR. [Concomitant]
     Active Substance: ENTECAVIR
  3. ATENOLOL. [Concomitant]
     Active Substance: ATENOLOL
  4. XL184 [Suspect]
     Active Substance: CABOZANTINIB
     Indication: HEPATOCELLULAR CARCINOMA
     Dosage: MOST RECENT DOSE ON 31/OCT/2019
     Route: 048
     Dates: start: 20191009
  5. AMLODIPINE [Concomitant]
     Active Substance: AMLODIPINE BESYLATE

REACTIONS (1)
  - Tumour lysis syndrome [Fatal]

NARRATIVE: CASE EVENT DATE: 20191101
